FAERS Safety Report 4523514-2 (Version None)
Quarter: 2004Q4

REPORT INFORMATION
  Report Type: 
  Country: None (occurrence: None)
  Receive Date: 20041117
  Receipt Date: 20040728
  Transmission Date: 20050328
  Serious: Yes (Hospitalization)
  Sender: FDA-Public Use
  Company Number: DE-JNJFOC-20040707636

PATIENT
  Age: 86 Year
  Sex: Male

DRUGS (8)
  1. LEVOFLOXACIN [Suspect]
     Indication: PNEUMONIA
     Dosage: INTRAVENOUS
     Dates: start: 20040115, end: 20040116
  2. LEVOFLOXACIN [Suspect]
     Indication: PNEUMONIA
     Dosage: ORAL
     Route: 048
     Dates: start: 20040117, end: 20040120
  3. PROTONIX [Concomitant]
  4. HEPARIN [Concomitant]
  5. ASPIRIN [Concomitant]
  6. LOTENSIN [Concomitant]
  7. COLACE (DOCUSATE SODIUM) [Concomitant]
  8. PROCRIT [Concomitant]

REACTIONS (3)
  - MENTAL STATUS CHANGES [None]
  - PNEUMONIA [None]
  - RENAL FAILURE CHRONIC [None]
